FAERS Safety Report 6114920-3 (Version None)
Quarter: 2009Q1

REPORT INFORMATION
  Report Type: 
  Country: None (occurrence: None)
  Receive Date: 20090313
  Receipt Date: 20090310
  Transmission Date: 20090719
  Serious: Yes (Death)
  Sender: FDA-Public Use
  Company Number: PHHY2009VE07280

PATIENT
  Sex: Male

DRUGS (6)
  1. XOLAIR [Suspect]
     Indication: ASTHMA
     Dosage: 400 MG, QMO
  2. XOLAIR [Suspect]
     Dosage: 450 MG MONTHLY (THE FIRST DOSE 300MG AND FIFTEEN DAYS LATER 150MG)
     Route: 058
  3. XOLAIR [Suspect]
     Dosage: 300MG
  4. XOLAIR [Suspect]
     Dosage: 150 MG
     Route: 058
  5. FORADIL [Suspect]
     Indication: ASTHMA
     Dosage: 12 MG
  6. MIFLONIDE [Suspect]
     Dosage: 400 MG, BID
     Route: 065

REACTIONS (1)
  - RESPIRATORY ARREST [None]
